FAERS Safety Report 15041558 (Version 2)
Quarter: 2019Q2

REPORT INFORMATION
  Report Type: Spontaneous
  Country: US (occurrence: US)
  Receive Date: 20180621
  Receipt Date: 20190507
  Transmission Date: 20190711
  Serious: Yes (Other)
  Sender: FDA-Public Use
  Company Number: US-ASTRAZENECA-2018SE77637

PATIENT
  Age: 53 Year
  Sex: Female

DRUGS (20)
  1. OMEPRAZOLE. [Suspect]
     Active Substance: OMEPRAZOLE
     Route: 048
     Dates: start: 2013, end: 2016
  2. AMLODIPINE [Concomitant]
     Active Substance: AMLODIPINE BESYLATE
  3. ATORVASTATIN [Concomitant]
     Active Substance: ATORVASTATIN
  4. HYDRALAZINE [Concomitant]
     Active Substance: HYDRALAZINE HYDROCHLORIDE
  5. METFORMIN [Concomitant]
     Active Substance: METFORMIN HYDROCHLORIDE
  6. CALCITRIOL. [Concomitant]
     Active Substance: CALCITRIOL
  7. FUROSEMIDE. [Concomitant]
     Active Substance: FUROSEMIDE
  8. TRAMADOL. [Concomitant]
     Active Substance: TRAMADOL
  9. GABAPENTIN. [Concomitant]
     Active Substance: GABAPENTIN
  10. PRAVASTATIN. [Concomitant]
     Active Substance: PRAVASTATIN
  11. ALBUTEROL. [Concomitant]
     Active Substance: ALBUTEROL
  12. NEXIUM [Suspect]
     Active Substance: ESOMEPRAZOLE MAGNESIUM
     Indication: DYSPEPSIA
     Route: 048
     Dates: start: 2013, end: 2016
  13. METOPROLOL. [Concomitant]
     Active Substance: METOPROLOL
  14. LISINOPRIL. [Concomitant]
     Active Substance: LISINOPRIL
  15. NEXIUM [Suspect]
     Active Substance: ESOMEPRAZOLE MAGNESIUM
     Indication: DYSPEPSIA
     Route: 048
     Dates: start: 2013, end: 2016
  16. OMEPRAZOLE. [Suspect]
     Active Substance: OMEPRAZOLE
     Route: 048
     Dates: start: 2013, end: 2016
  17. TUMS [Concomitant]
     Active Substance: CALCIUM CARBONATE
  18. LANTUS [Concomitant]
     Active Substance: INSULIN GLARGINE
  19. LORCET [Concomitant]
     Active Substance: ACETAMINOPHEN\HYDROCODONE BITARTRATE
  20. ASPIRIN. [Concomitant]
     Active Substance: ASPIRIN

REACTIONS (3)
  - Chronic kidney disease [Not Recovered/Not Resolved]
  - Nephrogenic anaemia [Unknown]
  - Renal failure [Not Recovered/Not Resolved]

NARRATIVE: CASE EVENT DATE: 2011
